FAERS Safety Report 15105928 (Version 3)
Quarter: 2019Q2

REPORT INFORMATION
  Report Type: Spontaneous
  Country: US (occurrence: US)
  Receive Date: 20180704
  Receipt Date: 20190415
  Transmission Date: 20190711
  Serious: Yes (Other)
  Sender: FDA-Public Use
  Company Number: US-ASTRAZENECA-2018SE84555

PATIENT
  Sex: Male

DRUGS (37)
  1. NEXIUM 24HR [Suspect]
     Active Substance: ESOMEPRAZOLE MAGNESIUM
     Indication: GASTRIC PH DECREASED
     Route: 048
     Dates: start: 2005, end: 2012
  2. LISINOPRIL. [Concomitant]
     Active Substance: LISINOPRIL
  3. MEPERIDINE [Concomitant]
     Active Substance: MEPERIDINE
  4. ALLOPURINOL. [Concomitant]
     Active Substance: ALLOPURINOL
  5. NEXIUM [Suspect]
     Active Substance: ESOMEPRAZOLE MAGNESIUM
     Indication: GASTRIC PH DECREASED
     Route: 048
     Dates: start: 2005, end: 2012
  6. VICODIN [Concomitant]
     Active Substance: ACETAMINOPHEN\HYDROCODONE BITARTRATE
  7. CODEINE [Concomitant]
     Active Substance: CODEINE
  8. MIRTAZAPINE. [Concomitant]
     Active Substance: MIRTAZAPINE
  9. ASPIRIN. [Concomitant]
     Active Substance: ASPIRIN
  10. NEXIUM [Suspect]
     Active Substance: ESOMEPRAZOLE MAGNESIUM
     Indication: GASTROOESOPHAGEAL REFLUX DISEASE
     Route: 048
     Dates: start: 2005, end: 2012
  11. MORPHINE [Concomitant]
     Active Substance: MORPHINE
  12. TAMSULOSIN [Concomitant]
     Active Substance: TAMSULOSIN
  13. SINGULAIR [Concomitant]
     Active Substance: MONTELUKAST SODIUM
  14. NEXIUM 24HR [Suspect]
     Active Substance: ESOMEPRAZOLE MAGNESIUM
     Indication: GASTROOESOPHAGEAL REFLUX DISEASE
     Route: 048
     Dates: start: 2005, end: 2012
  15. ROFECOXIB [Concomitant]
     Active Substance: ROFECOXIB
  16. TORADOL [Concomitant]
     Active Substance: KETOROLAC TROMETHAMINE
  17. SPIRIVA [Concomitant]
     Active Substance: TIOTROPIUM BROMIDE MONOHYDRATE
  18. PRAVASTATIN. [Concomitant]
     Active Substance: PRAVASTATIN
  19. CYMBALTA [Concomitant]
     Active Substance: DULOXETINE HYDROCHLORIDE
  20. HYDROMORPHONE [Concomitant]
     Active Substance: HYDROMORPHONE
  21. OMEPRAZOLE. [Suspect]
     Active Substance: OMEPRAZOLE
     Route: 065
  22. PANTOPRAZOLE [Suspect]
     Active Substance: PANTOPRAZOLE
     Route: 065
  23. AVODART [Concomitant]
     Active Substance: DUTASTERIDE
  24. VIOXX [Concomitant]
     Active Substance: ROFECOXIB
  25. PIPERACILLIN. [Concomitant]
     Active Substance: PIPERACILLIN SODIUM
  26. DEMEROL HCL [Concomitant]
  27. CALCIUM ACETATE. [Concomitant]
     Active Substance: CALCIUM ACETATE
  28. ALBUTEROL. [Concomitant]
     Active Substance: ALBUTEROL
  29. AMITRIPTYLINE [Concomitant]
     Active Substance: AMITRIPTYLINE
  30. CITALOPRAM [Concomitant]
     Active Substance: CITALOPRAM HYDROBROMIDE
  31. PANTOPRAZOLE [Concomitant]
     Active Substance: PANTOPRAZOLE
     Dosage: TAKE 1 TABLET ORAL DAILY
     Route: 048
  32. PENICILLIN [Concomitant]
     Active Substance: PENICILLIN
  33. GABAPENTIN. [Concomitant]
     Active Substance: GABAPENTIN
  34. DIOVAN [Concomitant]
     Active Substance: VALSARTAN
  35. TOPAMAX [Concomitant]
     Active Substance: TOPIRAMATE
  36. FOLIC ACID. [Concomitant]
     Active Substance: FOLIC ACID
  37. CARTIA [Concomitant]

REACTIONS (2)
  - Chronic kidney disease [Unknown]
  - Nephrogenic anaemia [Unknown]
